FAERS Safety Report 8046322-7 (Version None)
Quarter: 2012Q1

REPORT INFORMATION
  Report Type: 
  Country: None (occurrence: None)
  Receive Date: 20120113
  Receipt Date: 20120109
  Transmission Date: 20120608
  Serious: No
  Sender: FDA-Public Use
  Company Number: US-PFIZER INC-2012006398

PATIENT
  Sex: Female
  Weight: 90.7 kg

DRUGS (2)
  1. DEPO-PROVERA [Suspect]
     Indication: OFF LABEL USE
     Dosage: UNK, EVERY 3 MONTHS
     Dates: start: 19900101, end: 20110101
  2. DEPO-PROVERA [Suspect]
     Indication: MENORRHAGIA

REACTIONS (1)
  - PAIN [None]
